FAERS Safety Report 9028006 (Version 1)
Quarter: 2013Q1

REPORT INFORMATION
  Report Type: Spontaneous
  Country: US (occurrence: None)
  Receive Date: 20130114
  Receipt Date: 20130114
  Transmission Date: 20140127
  Serious: Yes (Hospitalization)
  Sender: FDA-Public Use
  Company Number: None

PATIENT
  Age: 58 Year
  Sex: Male
  Weight: 110.5 kg

DRUGS (2)
  1. IOPROMIDE [Suspect]
     Indication: PNEUMONIA
     Dosage: 70 ML ONCE IV
     Route: 042
     Dates: start: 20130102, end: 20130102
  2. IOPROMIDE [Suspect]
     Indication: COMPUTERISED TOMOGRAM
     Dosage: 70 ML ONCE IV
     Route: 042
     Dates: start: 20130102, end: 20130102

REACTIONS (1)
  - Anaphylactic reaction [None]
